FAERS Safety Report 5086790-6 (Version None)
Quarter: 2006Q3

REPORT INFORMATION
  Report Type: 
  Country: None (occurrence: None)
  Receive Date: 20060823
  Receipt Date: 20060814
  Transmission Date: 20061208
  Serious: Yes (Other)
  Sender: FDA-Public Use
  Company Number: 2006UW16167

PATIENT
  Age: 63 Year
  Sex: Female

DRUGS (2)
  1. ARIMIDEX [Suspect]
     Indication: BREAST CANCER
     Route: 048
     Dates: start: 20060721
  2. ARIMIDEX [Suspect]
     Route: 048
     Dates: start: 20060801

REACTIONS (9)
  - EYE SWELLING [None]
  - HEADACHE [None]
  - HERPES ZOSTER [None]
  - INFLUENZA [None]
  - PRURITUS [None]
  - PYREXIA [None]
  - RASH MACULAR [None]
  - RHINORRHOEA [None]
  - SOMNOLENCE [None]
